FAERS Safety Report 5975241-2 (Version None)
Quarter: 2008Q4

REPORT INFORMATION
  Report Type: 
  Country: None (occurrence: None)
  Receive Date: 20081202
  Receipt Date: 20081125
  Transmission Date: 20090506
  Serious: Yes (Other)
  Sender: FDA-Public Use
  Company Number: US-ASTRAZENECA-2008UW23602

PATIENT
  Age: 67 Year
  Sex: Female
  Weight: 77.1 kg

DRUGS (12)
  1. NEXIUM [Suspect]
     Indication: REFLUX OESOPHAGITIS
     Dates: start: 20071001
  2. AROMASIN [Suspect]
     Indication: BREAST CANCER
     Route: 048
     Dates: start: 20080601
  3. BONIVA [Suspect]
     Indication: RESORPTION BONE INCREASED
     Dates: start: 20080801
  4. FORTEO [Concomitant]
  5. ATENOLOL [Concomitant]
     Indication: HYPERTENSION
  6. HYDROCHLOROTHIAZIDE [Concomitant]
     Indication: HYPERTENSION
  7. ZETIA [Concomitant]
     Indication: BLOOD CHOLESTEROL INCREASED
  8. RED YEAST RICE [Concomitant]
     Indication: BLOOD CHOLESTEROL INCREASED
  9. CALCIUM [Concomitant]
  10. MULTI-VITAMINS [Concomitant]
  11. TERIPARATIDE [Concomitant]
  12. ESTROGENIC SUBSTANCE [Concomitant]
     Dates: end: 20080101

REACTIONS (9)
  - ABDOMINAL PAIN UPPER [None]
  - ARTHRALGIA [None]
  - FATIGUE [None]
  - JOINT INJURY [None]
  - MUSCULAR WEAKNESS [None]
  - MYALGIA [None]
  - OSTEOPOROSIS [None]
  - RASH [None]
  - WEIGHT INCREASED [None]
